FAERS Safety Report 23959566 (Version 2)
Quarter: 2024Q2

REPORT INFORMATION
  Report Type: Spontaneous
  Country: US (occurrence: US)
  Receive Date: 20240611
  Receipt Date: 20240626
  Transmission Date: 20240716
  Serious: Yes (Death, Hospitalization)
  Sender: FDA-Public Use
  Company Number: US-TEVA-VS-3203429

PATIENT
  Age: 69 Year
  Sex: Male

DRUGS (1)
  1. COLCHICINE [Suspect]
     Active Substance: COLCHICINE
     Indication: Gout
     Dosage: TOOK ORAL COLCHICINE BOTTLE OF AROUND 40 TABLETS
     Route: 048

REACTIONS (5)
  - Toxicity to various agents [Fatal]
  - Cardiogenic shock [Fatal]
  - Cardiac arrest [Fatal]
  - Medication error [Fatal]
  - Accidental overdose [Fatal]
